FAERS Safety Report 21269104 (Version 1)
Quarter: 2022Q3

REPORT INFORMATION
  Report Type: Spontaneous
  Country: US (occurrence: US)
  Receive Date: 20220830
  Receipt Date: 20220830
  Transmission Date: 20221027
  Serious: No
  Sender: FDA-Public Use
  Company Number: US-GLENMARK PHARMACEUTICALS-2022GMK071995

PATIENT

DRUGS (1)
  1. HYDROCORTISONE [Suspect]
     Active Substance: HYDROCORTISONE
     Indication: Pruritus
     Dosage: UNK
     Route: 061

REACTIONS (6)
  - Furuncle [Unknown]
  - Abscess [Unknown]
  - Product physical consistency issue [Unknown]
  - Product leakage [Unknown]
  - Product container issue [Unknown]
  - Product container seal issue [Unknown]
